FAERS Safety Report 6315146-0 (Version None)
Quarter: 2009Q3

REPORT INFORMATION
  Report Type: 
  Country: None (occurrence: None)
  Receive Date: 20090819
  Receipt Date: 20090811
  Transmission Date: 20100115
  Serious: Yes (Hospitalization)
  Sender: FDA-Public Use
  Company Number: FR-KINGPHARMUSA00001-K200900971

PATIENT
  Age: 31 Year
  Sex: Male

DRUGS (1)
  1. SEPTRA [Suspect]
     Dosage: UNK

REACTIONS (5)
  - DRUG RASH WITH EOSINOPHILIA AND SYSTEMIC SYMPTOMS [None]
  - HYPOTENSION [None]
  - NEPHRITIS [None]
  - PYREXIA [None]
  - TACHYCARDIA [None]
